FAERS Safety Report 25346132 (Version 4)
Quarter: 2025Q2

REPORT INFORMATION
  Report Type: Report from Study
  Country: FR (occurrence: FR)
  Receive Date: 20250522
  Receipt Date: 20250618
  Transmission Date: 20250716
  Serious: Yes (Hospitalization, Other)
  Sender: NOVARTIS
  Company Number: FR-002147023-NVSC2024FR248065

PATIENT
  Age: 31 Year
  Sex: Female
  Weight: 72 kg

DRUGS (11)
  1. VIJOICE [Suspect]
     Active Substance: ALPELISIB
     Indication: PIK3CA related overgrowth spectrum
     Route: 048
     Dates: start: 20180810, end: 20190905
  2. VIJOICE [Suspect]
     Active Substance: ALPELISIB
     Dosage: 200 MG, QD ((18 WEEK OF AMENORRHEA)
     Route: 048
     Dates: start: 20241203
  3. VIJOICE [Suspect]
     Active Substance: ALPELISIB
     Dosage: 150 MG, QD
     Route: 048
     Dates: start: 20241220
  4. VIJOICE [Suspect]
     Active Substance: ALPELISIB
     Dosage: 100 MG, QD
     Route: 048
     Dates: start: 20241227
  5. VIJOICE [Suspect]
     Active Substance: ALPELISIB
     Route: 048
     Dates: start: 20250115, end: 20250224
  6. VIJOICE [Suspect]
     Active Substance: ALPELISIB
     Dosage: 100 MG, TIW  (PARTIR DU 20/12 PUIS 100MG PAR JOUR ? PARTIR DU 27/12 PUIS 100MG 1 JOUR SUR 2 ? PARTIR
     Route: 048
  7. PROPRANOLOL [Suspect]
     Active Substance: PROPRANOLOL HYDROCHLORIDE
     Indication: Migraine
     Dosage: 40 MG, QD
     Route: 065
     Dates: start: 202412, end: 20250224
  8. LOVENOX [Concomitant]
     Active Substance: ENOXAPARIN SODIUM
     Indication: Product used for unknown indication
     Dosage: 6000 IU, QD
     Route: 065
  9. FOLIC ACID [Concomitant]
     Active Substance: FOLIC ACID
     Indication: Product used for unknown indication
     Route: 065
  10. MINERAL OIL [Concomitant]
     Active Substance: MINERAL OIL
     Indication: Product used for unknown indication
     Route: 065
  11. Celestene [Concomitant]
     Indication: Product used for unknown indication
     Route: 065
     Dates: start: 20250217, end: 20250218

REACTIONS (5)
  - Intermenstrual bleeding [Unknown]
  - Foetal growth restriction [Not Recovered/Not Resolved]
  - Haemoglobin decreased [Unknown]
  - Premature delivery [Unknown]
  - Maternal exposure during pregnancy [Unknown]

NARRATIVE: CASE EVENT DATE: 20240101
